FAERS Safety Report 7447005-4 (Version None)
Quarter: 2011Q2

REPORT INFORMATION
  Report Type: 
  Country: None (occurrence: None)
  Receive Date: 20110429
  Receipt Date: 20110419
  Transmission Date: 20111010
  Serious: Yes (Hospitalization)
  Sender: FDA-Public Use
  Company Number: US-US-EMD SERONO, INC.-7054939

PATIENT
  Sex: Female

DRUGS (1)
  1. REBIF [Suspect]
     Indication: MULTIPLE SCLEROSIS
     Route: 058
     Dates: start: 20051024, end: 20110318

REACTIONS (4)
  - CEREBROVASCULAR ACCIDENT [None]
  - VISION BLURRED [None]
  - FACIAL SPASM [None]
  - PARAESTHESIA [None]
